FAERS Safety Report 9221721 (Version 1)
Quarter: 2013Q2

REPORT INFORMATION
  Report Type: Spontaneous
  Country: US (occurrence: US)
  Receive Date: 20130410
  Receipt Date: 20130410
  Transmission Date: 20140414
  Serious: Yes (Other)
  Sender: FDA-Public Use
  Company Number: US-BAYER-2013-044374

PATIENT
  Sex: Female

DRUGS (1)
  1. AVELOX [Suspect]
     Dosage: 3 DF, UNK

REACTIONS (5)
  - Heart rate abnormal [None]
  - Abnormal behaviour [None]
  - Tremor [None]
  - Dyspnoea [None]
  - Nervousness [None]
